FAERS Safety Report 9366787 (Version 5)
Quarter: 2013Q3

REPORT INFORMATION
  Report Type: Report from Study
  Country: US (occurrence: US)
  Receive Date: 20130625
  Receipt Date: 20130812
  Transmission Date: 20140515
  Serious: Yes (Hospitalization, Other)
  Sender: FDA-Public Use
  Company Number: US-TEVA-415046USA

PATIENT
  Age: 66 Year
  Sex: Male
  Weight: 100.7 kg

DRUGS (25)
  1. BENDAMUSTINE [Suspect]
     Indication: CHEMOTHERAPY
     Dosage: UID/QD
     Route: 042
     Dates: start: 20130606, end: 20130607
  2. FIDAXOMICIN BLINDED (CODE NOT BROKEN) [Suspect]
     Indication: PROPHYLAXIS
     Dosage: 1 DOSAGE FORMS DAILY; UID/QD
     Route: 048
     Dates: start: 20130606
  3. CYTARABINE [Concomitant]
     Dates: start: 20130608, end: 20130611
  4. ETOPOSIDE [Concomitant]
     Dates: start: 20130608, end: 20130611
  5. MELPHALAN [Concomitant]
     Dates: start: 20130612, end: 20130612
  6. AMBIEN CR [Concomitant]
     Dates: start: 20130507
  7. CLARITIN [Concomitant]
     Dates: start: 20130507
  8. DOXAZOSIN [Concomitant]
     Dates: start: 20130507
  9. LIPITOR [Concomitant]
     Dates: start: 20130507
  10. LOSARTAN/HYDROCHLOROTHIAZIDE [Concomitant]
     Dates: start: 20130516
  11. URSODIOL [Concomitant]
     Dates: start: 20130606
  12. NEUTRASAL [Concomitant]
     Indication: PROPHYLAXIS
  13. ACYCLOVIR [Concomitant]
     Dates: start: 20130606
  14. COMPAZINE [Concomitant]
     Dates: start: 20130507
  15. DIFLUCAN [Concomitant]
     Dates: start: 20130606, end: 20130625
  16. LEVAQUIN [Concomitant]
     Dates: start: 20130516
  17. NEXIUM [Concomitant]
     Dates: start: 20130507
  18. PROPANTHELINE [Concomitant]
     Dates: start: 20130606, end: 20130612
  19. ULTRAM [Concomitant]
     Dates: start: 20130507
  20. VANCOMYCIN [Concomitant]
     Dates: start: 20130527, end: 20130527
  21. ZOFRAN [Concomitant]
     Dates: start: 20130507
  22. CAPHOSOL [Concomitant]
     Dates: start: 20130607
  23. ONDANSETRON [Concomitant]
     Dates: start: 20130606, end: 20130612
  24. DEXAMETHASONE [Concomitant]
     Dates: start: 20130606, end: 20130612
  25. LORAZEPAM [Concomitant]
     Dates: start: 20130606, end: 20130612

REACTIONS (1)
  - Syncope [Recovered/Resolved]
